FAERS Safety Report 24346555 (Version 1)
Quarter: 2024Q3

REPORT INFORMATION
  Report Type: Report from Study
  Country: US (occurrence: US)
  Receive Date: 20240921
  Receipt Date: 20240921
  Transmission Date: 20241016
  Serious: Yes (Other)
  Sender: ABBVIE
  Company Number: US-ABBVIE-5769868

PATIENT
  Sex: Female

DRUGS (1)
  1. SKYRIZI [Suspect]
     Active Substance: RISANKIZUMAB-RZAA
     Indication: Psoriasis
     Route: 058
     Dates: start: 20230118

REACTIONS (5)
  - Skin cancer [Recovered/Resolved]
  - Loss of personal independence in daily activities [Unknown]
  - Parkinson^s disease [Unknown]
  - Dysphagia [Unknown]
  - Neck pain [Unknown]
